FAERS Safety Report 20965341 (Version 1)
Quarter: 2022Q2

REPORT INFORMATION
  Report Type: Spontaneous
  Country: FR (occurrence: FR)
  Receive Date: 20220616
  Receipt Date: 20220616
  Transmission Date: 20220720
  Serious: Yes (Other)
  Sender: FDA-Public Use
  Company Number: FR-AMGEN-FRASP2022099968

PATIENT

DRUGS (14)
  1. TRASTUZUMAB [Suspect]
     Active Substance: TRASTUZUMAB
     Indication: HER2 positive breast cancer
     Dosage: 6 MILLIGRAM/KG (EVERY 21 DAYS)
     Route: 042
  2. FILGRASTIM [Suspect]
     Active Substance: FILGRASTIM
     Indication: Prophylaxis
     Route: 065
  3. PERTUZUMAB [Suspect]
     Active Substance: PERTUZUMAB
     Indication: Product used for unknown indication
     Dosage: 420 MILLIGRAM (EVERY 21 DAYS)
     Route: 042
  4. DOXORUBICIN [Concomitant]
     Active Substance: DOXORUBICIN
     Dosage: 40 MILLIGRAM/M2 (DAY 1)
     Route: 042
  5. VINORELBINE [Concomitant]
     Active Substance: VINORELBINE TARTRATE
     Dosage: 25 MILLIGRAM/M2 (DAY 1)
     Route: 042
  6. CYCLOPHOSPHAMIDE [Concomitant]
     Active Substance: CYCLOPHOSPHAMIDE
     Dosage: 250 MILLIGRAM/M2, QD (DAY 1-4)
  7. CYCLOPHOSPHAMIDE [Concomitant]
     Active Substance: CYCLOPHOSPHAMIDE
     Dosage: 500 MILLIGRAM,M2, (DAY 1)
  8. FLUOROURACIL [Concomitant]
     Active Substance: FLUOROURACIL
     Dosage: 400 MILLIGRAM/M2, QD (IN 2 H, (DAYS 1-4))
     Route: 042
  9. FLUOROURACIL [Concomitant]
     Active Substance: FLUOROURACIL
     Dosage: 500 MILLIGRAM/M2 (IN 2 H)
     Route: 042
  10. FLUOROURACIL [Concomitant]
     Active Substance: FLUOROURACIL
     Dosage: 400 MILLIGRAM/M2, QD (IN 2 H, (DAYS 1-4))
     Route: 042
  11. LEUCOVORIN [Concomitant]
     Active Substance: LEUCOVORIN
     Dosage: 200 MILLIGRAM/M2 (IN 15^ DAY 1)
     Route: 042
  12. LEUCOVORIN [Concomitant]
     Active Substance: LEUCOVORIN
     Dosage: 200 MILLIGRAM, QD (IN 15 DAYS 1-4)
     Route: 042
  13. PACLITAXEL [Concomitant]
     Active Substance: PACLITAXEL
     Dosage: 175 MILLIGRAM/M2 (IV DAY 1)
  14. CARBOPLATIN [Concomitant]
     Active Substance: CARBOPLATIN
     Dosage: 5 MILLIGRAM/ML  (DAY 1)
     Route: 042

REACTIONS (5)
  - Acute myeloid leukaemia [Unknown]
  - Breast cancer recurrent [Unknown]
  - Malignant neoplasm progression [Unknown]
  - Therapy partial responder [Unknown]
  - Off label use [Unknown]
